FAERS Safety Report 14241580 (Version 3)
Quarter: 2017Q4

REPORT INFORMATION
  Report Type: Report from Study
  Country: None (occurrence: TW)
  Receive Date: 20171201
  Receipt Date: 20171221
  Transmission Date: 20180321
  Serious: Yes (Death, Life-Threatening, Hospitalization, Other)
  Sender: FDA-Public Use
  Company Number: TW-ABBVIE-17K-153-2178047-00

PATIENT
  Age: 65 Year
  Sex: Male
  Weight: 54 kg

DRUGS (1)
  1. HUMIRA [Suspect]
     Active Substance: ADALIMUMAB
     Indication: PSORIASIS
     Route: 058
     Dates: start: 20160407, end: 20171002

REACTIONS (21)
  - Troponin increased [Unknown]
  - Blood potassium decreased [Unknown]
  - Pleural effusion [Unknown]
  - Pneumonia [Unknown]
  - Blood creatine phosphokinase MB increased [Unknown]
  - Bilirubin conjugated increased [Unknown]
  - Ammonia increased [Unknown]
  - Blood creatinine increased [Unknown]
  - Cardiac arrest [Unknown]
  - Loss of consciousness [Unknown]
  - Pulmonary haemorrhage [Unknown]
  - Blood urea increased [Unknown]
  - Death [Fatal]
  - Blood pressure decreased [Unknown]
  - Pyrexia [Not Recovered/Not Resolved]
  - Oedema peripheral [Not Recovered/Not Resolved]
  - Dyspnoea [Not Recovered/Not Resolved]
  - Blood glucose increased [Unknown]
  - Blood bilirubin increased [Unknown]
  - Apnoea [Unknown]
  - Haemoglobin decreased [Unknown]

NARRATIVE: CASE EVENT DATE: 201711
